FAERS Safety Report 5884222-9 (Version None)
Quarter: 2008Q3

REPORT INFORMATION
  Report Type: 
  Country: None (occurrence: None)
  Receive Date: 20080915
  Receipt Date: 20080909
  Transmission Date: 20090109
  Serious: Yes (Hospitalization)
  Sender: FDA-Public Use
  Company Number: US-B.I. PHARMACEUTICALS,INC./RIDGEFIELD-2008-BP-13796BP

PATIENT
  Age: 62 Year
  Sex: Female

DRUGS (4)
  1. ALUPENT [Suspect]
     Indication: CHRONIC OBSTRUCTIVE PULMONARY DISEASE
     Route: 055
     Dates: end: 20080907
  2. XOPENEX [Concomitant]
  3. FLOVENT [Concomitant]
  4. SINGULAIAR [Concomitant]

REACTIONS (1)
  - DYSPNOEA [None]
